FAERS Safety Report 23000317 (Version 2)
Quarter: 2023Q4

REPORT INFORMATION
  Report Type: Report from Study
  Country: CN (occurrence: CN)
  Receive Date: 20230928
  Receipt Date: 20231027
  Transmission Date: 20240110
  Serious: Yes (Death, Life-Threatening, Hospitalization)
  Sender: FDA-Public Use
  Company Number: CN-ADC THERAPEUTICS SA-ADC-2023-000510

PATIENT
  Age: 77 Year
  Sex: Female
  Weight: 52 kg

DRUGS (2)
  1. LONCASTUXIMAB TESIRINE [Suspect]
     Active Substance: LONCASTUXIMAB TESIRINE
     Indication: Diffuse large B-cell lymphoma
     Dosage: 150 MICROGRAM/KILOGRAM, Q3WK
     Route: 042
     Dates: start: 20230829, end: 20230829
  2. RITUXIMAB [Suspect]
     Active Substance: RITUXIMAB
     Indication: Diffuse large B-cell lymphoma
     Dosage: 375 MG/M2, Q3WK
     Route: 042
     Dates: start: 20230829, end: 20230829

REACTIONS (1)
  - Pneumonia viral [Fatal]

NARRATIVE: CASE EVENT DATE: 20230922
